FAERS Safety Report 14328659 (Version 3)
Quarter: 2021Q3

REPORT INFORMATION
  Report Type: Other
  Country: GB (occurrence: GB)
  Receive Date: 20171227
  Receipt Date: 20210921
  Transmission Date: 20211014
  Serious: Yes (Life-Threatening, Hospitalization, Other)
  Sender: FDA-Public Use
  Company Number: GB-MHRA-ADR 24178280

PATIENT

DRUGS (6)
  1. DEXAMETHASONE. [Suspect]
     Active Substance: DEXAMETHASONE
     Indication: NAUSEA
     Dosage: 2 MG, TID
     Route: 048
     Dates: start: 20040311, end: 20040314
  2. DICLOFENAC [Suspect]
     Active Substance: DICLOFENAC
     Dosage: 50 MG, TID
     Route: 048
  3. LAPATINIB [Suspect]
     Active Substance: LAPATINIB
     Indication: SQUAMOUS CELL CARCINOMA
     Dosage: 500 MG
     Route: 048
     Dates: start: 20040304, end: 20040313
  4. DICLOFENAC [Suspect]
     Active Substance: DICLOFENAC
     Indication: PAIN
     Dosage: 50 MG, TID (150 MG, QD)
     Route: 048
  5. CISPLATIN. [Suspect]
     Active Substance: CISPLATIN
     Indication: SQUAMOUS CELL CARCINOMA
     Dosage: 100 MG/M2, DRUG STILL BEING ADMINISTERED
     Route: 042
     Dates: start: 20040311
  6. CISPLATIN. [Suspect]
     Active Substance: CISPLATIN
     Dosage: 200 MG
     Route: 065

REACTIONS (3)
  - Haematemesis [Unknown]
  - Duodenal ulcer perforation [Recovered/Resolved]
  - Abdominal pain [Unknown]

NARRATIVE: CASE EVENT DATE: 20040314
